FAERS Safety Report 5726502-3 (Version None)
Quarter: 2008Q2

REPORT INFORMATION
  Report Type: 
  Country: None (occurrence: None)
  Receive Date: 20080502
  Receipt Date: 20080430
  Transmission Date: 20081010
  Serious: Yes (Death)
  Sender: FDA-Public Use
  Company Number: US-MERCK-0804USA06411

PATIENT
  Age: 22 Year
  Sex: Male

DRUGS (3)
  1. SINGULAIR [Suspect]
     Indication: RHINITIS ALLERGIC
     Route: 048
     Dates: start: 20071101, end: 20080401
  2. SINGULAIR [Suspect]
     Indication: ASTHMA
     Route: 048
     Dates: start: 20071101, end: 20080401
  3. ALLERGENIC EXTRACT [Concomitant]
     Route: 065

REACTIONS (1)
  - COMPLETED SUICIDE [None]
